FAERS Safety Report 5489173-X (Version None)
Quarter: 2007Q4

REPORT INFORMATION
  Report Type: 
  Country: None (occurrence: None)
  Receive Date: 20071005
  Receipt Date: 20070927
  Transmission Date: 20080405
  Serious: Yes (Other)
  Sender: FDA-Public Use
  Company Number: AEUSA200700221

PATIENT
  Age: 70 Year
  Sex: Male

DRUGS (2)
  1. GAMUNEX [Suspect]
     Indication: CHRONIC LYMPHOCYTIC LEUKAEMIA
     Dosage: QM; IV
     Route: 042
     Dates: start: 20070827, end: 20070827
  2. GAMUNEX [Suspect]
     Indication: OBLITERATIVE BRONCHIOLITIS
     Dosage: QM; IV
     Route: 042
     Dates: start: 20070827, end: 20070827

REACTIONS (4)
  - CONVULSION [None]
  - FALL [None]
  - LOSS OF CONSCIOUSNESS [None]
  - URINARY INCONTINENCE [None]
